FAERS Safety Report 14389075 (Version 2)
Quarter: 2018Q4

REPORT INFORMATION
  Report Type: Spontaneous
  Country: US (occurrence: US)
  Receive Date: 20180115
  Receipt Date: 20181127
  Transmission Date: 20190204
  Serious: Yes (Other)
  Sender: FDA-Public Use
  Company Number: US-SA-2017SA227483

PATIENT
  Age: 62 Year
  Sex: Female
  Weight: 73.02 kg

DRUGS (13)
  1. NEOSAR [Concomitant]
     Active Substance: CYCLOPHOSPHAMIDE
     Route: 042
  2. ASTAXANTHIN [Concomitant]
     Route: 065
  3. VITAMIN D [Suspect]
     Active Substance: CHOLECALCIFEROL
     Route: 065
  4. CYTOXAN [Concomitant]
     Active Substance: CYCLOPHOSPHAMIDE
     Route: 065
  5. CRESTOR [Concomitant]
     Active Substance: ROSUVASTATIN CALCIUM
     Dosage: UNK UNK,UNK
     Route: 065
     Dates: start: 20121101
  6. LEVOTHYROXINE. [Concomitant]
     Active Substance: LEVOTHYROXINE
     Dosage: UNK UNK,UNK
     Route: 065
     Dates: start: 20121101
  7. ESOMEPRAZOLE. [Concomitant]
     Active Substance: ESOMEPRAZOLE MAGNESIUM
     Dosage: UNK UNK,UNK
     Route: 065
     Dates: start: 20121101
  8. NEXIUM 1-2-3 [Suspect]
     Active Substance: AMOXICILLIN\CLARITHROMYCIN\ESOMEPRAZOLE
     Route: 065
  9. TAXOTERE [Suspect]
     Active Substance: DOCETAXEL
     Indication: BREAST CANCER
     Dosage: UNK UNK,Q3W
     Route: 042
     Dates: start: 20120320, end: 20120320
  10. TAXOTERE [Suspect]
     Active Substance: DOCETAXEL
     Dosage: UNK UNK,Q3W
     Route: 042
     Dates: start: 20120522, end: 20120522
  11. COENZYME Q10 [Suspect]
     Active Substance: UBIDECARENONE
     Route: 065
  12. MULTIVITAMINS + MINERALS PLUS LUTEIN [Suspect]
     Active Substance: MINERALS\VITAMINS
  13. MIRALAX [Concomitant]
     Active Substance: POLYETHYLENE GLYCOL 3350
     Route: 065

REACTIONS (2)
  - Alopecia [Recovering/Resolving]
  - Psychological trauma [Unknown]

NARRATIVE: CASE EVENT DATE: 20121123
